FAERS Safety Report 14375689 (Version 1)
Quarter: 2018Q1

REPORT INFORMATION
  Report Type: Spontaneous
  Country: CZ (occurrence: CZ)
  Receive Date: 20180111
  Receipt Date: 20180111
  Transmission Date: 20180509
  Serious: Yes (Disabling)
  Sender: FDA-Public Use
  Company Number: CZ-MYLANLABS-2018M1001987

PATIENT
  Age: 15 Year
  Sex: Male

DRUGS (3)
  1. PANTOPRAZOLE [Suspect]
     Active Substance: PANTOPRAZOLE
     Indication: PRODUCT USED FOR UNKNOWN INDICATION
     Dosage: 40 MG, UNK
     Route: 048
  2. MESALAZINE [Suspect]
     Active Substance: MESALAMINE
     Indication: PRODUCT USED FOR UNKNOWN INDICATION
     Dosage: 4 G, UNK
     Route: 048
  3. AZATHIOPRINE. [Suspect]
     Active Substance: AZATHIOPRINE
     Indication: PRODUCT USED FOR UNKNOWN INDICATION
     Dosage: 150 MG, UNK
     Route: 048

REACTIONS (6)
  - Vomiting [Recovered/Resolved]
  - Fatigue [Recovered/Resolved]
  - Iron deficiency anaemia [Recovered/Resolved]
  - Weight decreased [Recovered/Resolved]
  - Overdose [Recovered/Resolved]
  - Abdominal pain [Recovered/Resolved]
